FAERS Safety Report 4760762-0 (Version None)
Quarter: 2005Q3

REPORT INFORMATION
  Report Type: 
  Country: None (occurrence: None)
  Receive Date: 20050826
  Receipt Date: 20050113
  Transmission Date: 20060218
  Serious: Yes (Other)
  Sender: FDA-Public Use
  Company Number: USA-2005-0018323

PATIENT
  Age: 18 Year
  Sex: Male

DRUGS (1)
  1. OXYCONTIN [Suspect]
     Dosage: 320 MG, DAILY

REACTIONS (14)
  - ANXIETY [None]
  - CHILLS [None]
  - COLD SWEAT [None]
  - DIARRHOEA [None]
  - DRUG ABUSER [None]
  - DRUG DEPENDENCE [None]
  - DRUG WITHDRAWAL SYNDROME [None]
  - HOT FLUSH [None]
  - HYPERHIDROSIS [None]
  - HYPOVENTILATION [None]
  - INSOMNIA [None]
  - MUSCLE SPASMS [None]
  - TREMOR [None]
  - VOMITING [None]
